FAERS Safety Report 4501489-X (Version None)
Quarter: 2004Q4

REPORT INFORMATION
  Report Type: 
  Country: None (occurrence: None)
  Receive Date: 20040928
  Receipt Date: 20040819
  Transmission Date: 20050328
  Serious: No
  Sender: FDA-Public Use
  Company Number: 04P-163-0271056-00

PATIENT
  Age: 72 Year
  Sex: Female
  Weight: 52.1637 kg

DRUGS (7)
  1. HUMIRA [Suspect]
     Indication: RHEUMATOID ARTHRITIS
     Dosage: 40 MG, 1 IN 2 WK, SUBCUTANEOUS
     Route: 058
     Dates: start: 20040317, end: 20040601
  2. PREDNISONE [Concomitant]
  3. TRIAMCINOLONE ACETONIDE [Concomitant]
  4. HYDROXYCHLOROQUINE PHOSPHATE [Concomitant]
  5. ATENOLOL [Concomitant]
  6. ZESTINIL [Concomitant]
  7. AMLODIPINE BESYLATE [Concomitant]

REACTIONS (7)
  - BLOOD PRESSURE FLUCTUATION [None]
  - CHILLS [None]
  - NAIL DISORDER [None]
  - PYREXIA [None]
  - RASH [None]
  - SINUSITIS [None]
  - URINARY TRACT INFECTION [None]
